FAERS Safety Report 20811676 (Version 1)
Quarter: 2022Q2

REPORT INFORMATION
  Report Type: Spontaneous
  Country: GB (occurrence: GB)
  Receive Date: 20220510
  Receipt Date: 20220510
  Transmission Date: 20220720
  Serious: Yes (Other)
  Sender: FDA-Public Use
  Company Number: None

PATIENT
  Age: 1 Month
  Sex: Male
  Weight: 75 kg

DRUGS (2)
  1. FINASTERIDE [Suspect]
     Active Substance: FINASTERIDE
     Indication: Ill-defined disorder
     Dosage: 1MG DAILY
     Route: 048
     Dates: start: 20220201, end: 20220228
  2. FINASTERIDE [Suspect]
     Active Substance: FINASTERIDE
     Indication: Alopecia

REACTIONS (13)
  - Tinnitus [Not Recovered/Not Resolved]
  - Constipation [Not Recovered/Not Resolved]
  - Dyspepsia [Not Recovered/Not Resolved]
  - Muscle disorder [Not Recovered/Not Resolved]
  - Headache [Not Recovered/Not Resolved]
  - Gingival disorder [Not Recovered/Not Resolved]
  - Insomnia [Not Recovered/Not Resolved]
  - Skin atrophy [Not Recovered/Not Resolved]
  - Arthralgia [Not Recovered/Not Resolved]
  - Food allergy [Not Recovered/Not Resolved]
  - Anxiety [Not Recovered/Not Resolved]
  - Suicidal ideation [Not Recovered/Not Resolved]
  - Urinary tract disorder [Not Recovered/Not Resolved]

NARRATIVE: CASE EVENT DATE: 20220208
